FAERS Safety Report 15851380 (Version 1)
Quarter: 2019Q1

REPORT INFORMATION
  Report Type: Report from Study
  Country: None (occurrence: CA)
  Receive Date: 20190122
  Receipt Date: 20190122
  Transmission Date: 20190417
  Serious: Yes (Hospitalization)
  Sender: FDA-Public Use
  Company Number: CA-ABBVIE-19K-028-2633513-00

PATIENT
  Sex: Male

DRUGS (1)
  1. HUMIRA [Suspect]
     Active Substance: ADALIMUMAB
     Indication: COLITIS ULCERATIVE
     Route: 058
     Dates: start: 20180114

REACTIONS (6)
  - Defaecation urgency [Unknown]
  - Frequent bowel movements [Unknown]
  - Haematochezia [Recovering/Resolving]
  - General physical health deterioration [Unknown]
  - Ankylosing spondylitis [Unknown]
  - Iritis [Unknown]

NARRATIVE: CASE EVENT DATE: 2018
